FAERS Safety Report 9189434 (Version 3)
Quarter: 2013Q3

REPORT INFORMATION
  Report Type: Spontaneous
  Country: DE (occurrence: DE)
  Receive Date: 20130326
  Receipt Date: 20130808
  Transmission Date: 20140515
  Serious: Yes (Hospitalization, Other)
  Sender: FDA-Public Use
  Company Number: PHHY2013DE028248

PATIENT
  Sex: Male
  Weight: 50 kg

DRUGS (9)
  1. GILENYA [Suspect]
     Indication: MULTIPLE SCLEROSIS
     Dosage: 0.5 MG, QD
     Route: 048
     Dates: start: 20110831
  2. DANTAMACRIN [Concomitant]
  3. FOLSAN [Concomitant]
  4. LIORESAL INTRATHECAL [Concomitant]
  5. MAGNETRANS FORTE [Concomitant]
  6. NEXIUM//ESOMEPRAZOLE MAGNESIUM [Concomitant]
  7. SATIVEX [Concomitant]
  8. TETRA-SAAR [Concomitant]
  9. TRAMAL - SLOW RELEASE [Concomitant]

REACTIONS (7)
  - Acute myocardial infarction [Recovering/Resolving]
  - Angina pectoris [Unknown]
  - Chest discomfort [Unknown]
  - Dyspnoea [Unknown]
  - Blood creatine phosphokinase increased [Unknown]
  - Troponin T increased [Unknown]
  - Blood creatine phosphokinase MB increased [Unknown]
